FAERS Safety Report 16572800 (Version 1)
Quarter: 2019Q3

REPORT INFORMATION
  Report Type: Spontaneous
  Country: US (occurrence: US)
  Receive Date: 20190531
  Receipt Date: 20190531
  Transmission Date: 20191004
  Serious: Yes (Death, Disabling, Other)
  Sender: FDA-Public Use
  Company Number: None

PATIENT
  Age: 71 Year
  Sex: Female
  Weight: 106.14 kg

DRUGS (24)
  1. TYLENOL [Concomitant]
     Active Substance: ACETAMINOPHEN
  2. ADVAIR DISKUS [Concomitant]
     Active Substance: FLUTICASONE PROPIONATE\SALMETEROL XINAFOATE
  3. ALLOPURINOL. [Concomitant]
     Active Substance: ALLOPURINOL
  4. ATORVASTATIN [Concomitant]
     Active Substance: ATORVASTATIN
  5. NITROGLYCERIN. [Concomitant]
     Active Substance: NITROGLYCERIN
  6. FERROUS SULFATE. [Concomitant]
     Active Substance: FERROUS SULFATE
  7. FLUTICASONE. [Concomitant]
     Active Substance: FLUTICASONE
  8. FUROSEMIDE. [Concomitant]
     Active Substance: FUROSEMIDE
  9. INSULIN SYRINGE NEEDLE [Concomitant]
  10. NOVOLOG [Concomitant]
     Active Substance: INSULIN ASPART
  11. DILTIAZEM 24 HER (CD) 300MG CP [Suspect]
     Active Substance: DILTIAZEM
     Indication: ATRIAL FIBRILLATION
     Dosage: ?          QUANTITY:300 MG MILLIGRAM(S);?
     Route: 048
     Dates: start: 20190404
  12. DILTIAZEM 24H ER (CD) 240MG [Suspect]
     Active Substance: DILTIAZEM
     Dosage: ?          QUANTITY:240 MG MILLIGRAM(S);?
  13. SPIRIVA W/HANDIIHALER [Concomitant]
  14. DILTAIZEM 24H ER (CD) 180MG [Suspect]
     Active Substance: DILTIAZEM
     Dosage: ?          QUANTITY:180 MG MILLIGRAM(S);?
  15. VENOLIN HFA [Concomitant]
  16. LANTUS [Concomitant]
     Active Substance: INSULIN GLARGINE
  17. MAGNESIUM [Concomitant]
     Active Substance: MAGNESIUM
  18. METOPROLOL TARTRATE. [Concomitant]
     Active Substance: METOPROLOL TARTRATE
  19. PANTOPRAZOLE [Concomitant]
     Active Substance: PANTOPRAZOLE
  20. TRUE METRIX GLUCOSE TEST STRIO [Concomitant]
  21. LISINOPRIL. [Concomitant]
     Active Substance: LISINOPRIL
  22. ELIQUIS [Concomitant]
     Active Substance: APIXABAN
  23. VITAMIN B12 [Concomitant]
     Active Substance: CYANOCOBALAMIN
  24. IRON [Concomitant]
     Active Substance: IRON

REACTIONS (10)
  - Sleep terror [None]
  - Dizziness [None]
  - Peripheral swelling [None]
  - Decreased appetite [None]
  - Pruritus [None]
  - Hallucination, visual [None]
  - Insomnia [None]
  - Paranoia [None]
  - Joint swelling [None]
  - Depression [None]

NARRATIVE: CASE EVENT DATE: 20190416
